FAERS Safety Report 9528412 (Version 1)
Quarter: 2013Q1

REPORT INFORMATION
  Report Type: Spontaneous
  Country: US (occurrence: None)
  Receive Date: 20130314
  Receipt Date: 20130314
  Transmission Date: 20140127
  Serious: No
  Sender: FDA-Public Use
  Company Number: 1208US011781

PATIENT
  Age: 45 Year
  Sex: Female

DRUGS (5)
  1. VICTRELIS [Suspect]
     Indication: HEPATITIS C
     Route: 048
     Dates: start: 20120730
  2. RIBASPHERE [Suspect]
     Indication: HEPATITIS C
     Dates: start: 20120611
  3. PEGASYS [Suspect]
     Indication: HEPATITIS C
     Dates: start: 20120611
  4. PAXIL (PAROXETINE HYDROCHLORIDE) [Concomitant]
  5. KLONOPIN (CLONAZEPAM) (TABLETS) [Concomitant]

REACTIONS (35)
  - Muscle twitching [None]
  - Disorientation [None]
  - Head injury [None]
  - Dysmenorrhoea [None]
  - Lip pain [None]
  - Disturbance in attention [None]
  - Rhinorrhoea [None]
  - Abdominal pain upper [None]
  - Depression [None]
  - Mental disorder [None]
  - Menstrual disorder [None]
  - Movement disorder [None]
  - Hyperhidrosis [None]
  - Appetite disorder [None]
  - Dizziness [None]
  - Nausea [None]
  - Dysphonia [None]
  - Abdominal pain upper [None]
  - Glossodynia [None]
  - Dizziness [None]
  - Vomiting [None]
  - Feeling cold [None]
  - Decreased appetite [None]
  - Dry mouth [None]
  - Urticaria [None]
  - Anaemia [None]
  - Local swelling [None]
  - Rash generalised [None]
  - Alopecia [None]
  - Scar [None]
  - Dry skin [None]
  - Diarrhoea [None]
  - Decreased appetite [None]
  - Overdose [None]
  - Drug dose omission [None]
